FAERS Safety Report 14471916 (Version 7)
Quarter: 2018Q3

REPORT INFORMATION
  Report Type: Spontaneous
  Country: US (occurrence: US)
  Receive Date: 20180131
  Receipt Date: 20180702
  Transmission Date: 20181010
  Serious: Yes (Hospitalization, Other)
  Sender: FDA-Public Use
  Company Number: US-MALLINCKRODT-T201800287

PATIENT
  Age: 54 Year
  Sex: Female

DRUGS (3)
  1. H.P. ACTHAR [Suspect]
     Active Substance: CORTICOTROPIN
     Indication: RHEUMATOID ARTHRITIS
     Dosage: ONE TIME A WEEK
     Route: 058
     Dates: start: 2018, end: 2018
  2. H.P. ACTHAR [Suspect]
     Active Substance: CORTICOTROPIN
     Indication: MULTIPLE SCLEROSIS
     Dosage: 80 UNITS/ ML, TWICE WEEKLY (TUESDAY AND FRIDAY)
     Route: 058
     Dates: start: 20180112
  3. H.P. ACTHAR [Suspect]
     Active Substance: CORTICOTROPIN
     Dosage: 80 UNITS/ ML, TWICE WEEKLY (TUESDAY AND FRIDAY)
     Route: 058
     Dates: start: 2018

REACTIONS (20)
  - Joint stiffness [Recovering/Resolving]
  - Injection site extravasation [Not Recovered/Not Resolved]
  - Incorrect dose administered [Recovered/Resolved]
  - Drug use disorder [Unknown]
  - Paraesthesia [Recovering/Resolving]
  - C-reactive protein increased [Unknown]
  - Injection site pain [Not Recovered/Not Resolved]
  - Product storage error [Unknown]
  - Drug dose omission [Recovering/Resolving]
  - Oedema peripheral [Recovering/Resolving]
  - Hypoaesthesia [Recovering/Resolving]
  - Bedridden [Unknown]
  - Blood glucose increased [Unknown]
  - Red blood cell sedimentation rate increased [Unknown]
  - Injection site mass [Not Recovered/Not Resolved]
  - Nerve compression [Unknown]
  - Pain [Recovering/Resolving]
  - Injection site paraesthesia [Unknown]
  - Nasopharyngitis [Not Recovered/Not Resolved]
  - Lumbar spinal stenosis [Unknown]

NARRATIVE: CASE EVENT DATE: 20180112
